FAERS Safety Report 5847050-6 (Version None)
Quarter: 2008Q3

REPORT INFORMATION
  Report Type: 
  Country: None (occurrence: None)
  Receive Date: 20080815
  Receipt Date: 20080804
  Transmission Date: 20090109
  Serious: Yes (Other)
  Sender: FDA-Public Use
  Company Number: US-PFIZER INC-2008065649

PATIENT
  Sex: Female
  Weight: 47.6 kg

DRUGS (9)
  1. LYRICA [Suspect]
     Indication: BACK PAIN
  2. VICODIN [Concomitant]
  3. LISINOPRIL [Concomitant]
     Dosage: DAILY DOSE:5MG
  4. FUROSEMIDE [Concomitant]
  5. CITALOPRAM HYDROBROMIDE [Concomitant]
  6. LAMICTAL [Concomitant]
  7. CLONAZEPAM [Concomitant]
  8. CALCIUM [Concomitant]
  9. NORTRIPTYLINE HCL [Concomitant]

REACTIONS (13)
  - BALANCE DISORDER [None]
  - CONTUSION [None]
  - DEPRESSION [None]
  - DISTURBANCE IN ATTENTION [None]
  - DIZZINESS [None]
  - FATIGUE [None]
  - HEADACHE [None]
  - LYME DISEASE [None]
  - MOOD SWINGS [None]
  - NEURALGIA [None]
  - RASH PRURITIC [None]
  - SUICIDAL IDEATION [None]
  - WEIGHT INCREASED [None]
